FAERS Safety Report 7888883-4 (Version None)
Quarter: 2011Q4

REPORT INFORMATION
  Report Type: 
  Country: None (occurrence: None)
  Receive Date: 20111101
  Receipt Date: 20111101
  Transmission Date: 20120403
  Serious: No
  Sender: FDA-Public Use
  Company Number: None

PATIENT
  Sex: Female
  Weight: 56.3 kg

DRUGS (1)
  1. LEVETIRACETAM [Suspect]
     Indication: EPILEPSY
     Dosage: LEVITARITEM XR 2000 MG DAILY PO
     Route: 048
     Dates: start: 20111005, end: 20111007

REACTIONS (3)
  - PRODUCT SUBSTITUTION ISSUE [None]
  - DIZZINESS [None]
  - BALANCE DISORDER [None]
